FAERS Safety Report 6456124-0 (Version None)
Quarter: 2009Q4

REPORT INFORMATION
  Report Type: 
  Country: None (occurrence: None)
  Receive Date: 20091124
  Receipt Date: 20091124
  Transmission Date: 20100525
  Serious: No
  Sender: FDA-Public Use
  Company Number: None

PATIENT
  Sex: Female
  Weight: 136 kg

DRUGS (2)
  1. PHENYLEPHRINE 10MG/ML TEVA PHARMACEUTICALS [Suspect]
     Indication: HAEMORRHAGE
  2. OXYTOCIN [Suspect]

REACTIONS (1)
  - DRUG DISPENSING ERROR [None]
